FAERS Safety Report 10649387 (Version 3)
Quarter: 2015Q1

REPORT INFORMATION
  Report Type: Report from Study
  Country: FR (occurrence: FR)
  Receive Date: 20141212
  Receipt Date: 20150108
  Transmission Date: 20150720
  Serious: Yes (Death, Other)
  Sender: FDA-Public Use
  Company Number: FR-SHIRE-FR201408605

PATIENT
  Age: 14 Year
  Sex: Male

DRUGS (6)
  1. OTHER THERAPEUTIC PRODUCTS [Concomitant]
     Active Substance: UNSPECIFIED INGREDIENT
     Indication: PREMEDICATION
     Dosage: UNK, UNKNOWN
     Route: 065
  2. IDURSULFASE [Suspect]
     Active Substance: IDURSULFASE
     Dosage: 0.46 MG/KG, 1X/WEEK
     Route: 041
     Dates: start: 20061117
  3. IDURSULFASE [Suspect]
     Active Substance: IDURSULFASE
     Dosage: 0.61 MG/KG, 1X/WEEK
     Route: 041
     Dates: start: 20100930
  4. IDURSULFASE [Suspect]
     Active Substance: IDURSULFASE
     Dosage: 0.43 MG/KG, 1X/WEEK
     Route: 041
     Dates: start: 20071206
  5. IDURSULFASE [Suspect]
     Active Substance: IDURSULFASE
     Indication: MUCOPOLYSACCHARIDOSIS II
     Dosage: 0.60 MG/KG, 1X/WEEK
     Route: 041
     Dates: start: 20130308
  6. IDURSULFASE [Suspect]
     Active Substance: IDURSULFASE
     Dosage: 0.64 MG/KG, 1X/DAY:QD
     Route: 041
     Dates: start: 20081121

REACTIONS (1)
  - Cardiac arrest [Fatal]

NARRATIVE: CASE EVENT DATE: 20141126
